FAERS Safety Report 5510754-9 (Version None)
Quarter: 2007Q4

REPORT INFORMATION
  Report Type: 
  Country: None (occurrence: None)
  Receive Date: 20071108
  Receipt Date: 20071102
  Transmission Date: 20080405
  Serious: Yes (Life-Threatening, Hospitalization)
  Sender: FDA-Public Use
  Company Number: B0491221A

PATIENT
  Age: 70 Year
  Sex: Male

DRUGS (9)
  1. ARIXTRA [Suspect]
     Dosage: 2.5MG PER DAY
     Route: 058
     Dates: start: 20070925, end: 20070926
  2. LOVENOX [Suspect]
     Dosage: 4000IU PER DAY
     Route: 058
     Dates: start: 20070913, end: 20070920
  3. INNOHEP [Suspect]
     Dosage: 4500IU PER DAY
     Route: 058
     Dates: start: 20070921, end: 20070924
  4. IRBESARTAN [Concomitant]
     Dosage: 225MG PER DAY
  5. ALUMINUM HYDROXIDE AND MAGNESIUM TRISILICATE [Concomitant]
     Dosage: 4SAC PER DAY
     Route: 048
  6. TRAMADOL HYDROCHLORIDE AND ACETAMINOPHEN [Concomitant]
     Route: 048
     Dates: start: 20070913
  7. NABUCOX [Concomitant]
     Dosage: 2G PER DAY
     Route: 048
     Dates: start: 20070913
  8. INEXIUM [Concomitant]
     Dosage: 20MG PER DAY
     Route: 048
     Dates: start: 20070913
  9. TARDYFERON B9 [Concomitant]
     Dosage: 2TAB PER DAY
     Route: 048
     Dates: start: 20070913

REACTIONS (9)
  - C-REACTIVE PROTEIN INCREASED [None]
  - CHEST PAIN [None]
  - DEEP VEIN THROMBOSIS [None]
  - GENERAL PHYSICAL HEALTH DETERIORATION [None]
  - HEPARIN-INDUCED THROMBOCYTOPENIA [None]
  - INCISION SITE HAEMATOMA [None]
  - PULMONARY EMBOLISM [None]
  - PYREXIA [None]
  - RALES [None]
